FAERS Safety Report 7763727-X (Version None)
Quarter: 2011Q3

REPORT INFORMATION
  Report Type: 
  Country: None (occurrence: None)
  Receive Date: 20110921
  Receipt Date: 20110912
  Transmission Date: 20111222
  Serious: Yes (Other)
  Sender: FDA-Public Use
  Company Number: FR-AMGEN-FRASP2011047441

PATIENT
  Age: 44 Year
  Sex: Male

DRUGS (2)
  1. TRAMADOL HCL [Concomitant]
     Dosage: UNK
  2. ENBREL [Suspect]
     Indication: ANKYLOSING SPONDYLITIS
     Dosage: 25 MG, EVERY 5 DAYS
     Dates: start: 20090101

REACTIONS (8)
  - EPISTAXIS [None]
  - PAIN IN EXTREMITY [None]
  - LOCAL SWELLING [None]
  - FATIGUE [None]
  - OEDEMA PERIPHERAL [None]
  - HEADACHE [None]
  - NASAL OBSTRUCTION [None]
  - JOINT SWELLING [None]
